FAERS Safety Report 22389473 (Version 2)
Quarter: 2023Q2

REPORT INFORMATION
  Report Type: Report from Study
  Country: US (occurrence: US)
  Receive Date: 20230531
  Receipt Date: 20230613
  Transmission Date: 20230721
  Serious: Yes (Other)
  Sender: FDA-Public Use
  Company Number: US-GLAXOSMITHKLINE-US2023GSK076921

PATIENT

DRUGS (1)
  1. BELANTAMAB MAFODOTIN [Suspect]
     Active Substance: BELANTAMAB MAFODOTIN
     Indication: Plasma cell myeloma
     Dosage: UNK
     Route: 042

REACTIONS (5)
  - Ocular surface disease [Recovering/Resolving]
  - Corneal epithelial microcysts [Recovered/Resolved]
  - Punctate keratitis [Recovered/Resolved]
  - Ocular toxicity [Recovered/Resolved]
  - Dry eye [Recovered/Resolved]
